FAERS Safety Report 12327912 (Version 5)
Quarter: 2016Q4

REPORT INFORMATION
  Report Type: Spontaneous
  Country: US (occurrence: US)
  Receive Date: 20160503
  Receipt Date: 20161115
  Transmission Date: 20170207
  Serious: No
  Sender: FDA-Public Use
  Company Number: US-GLAXOSMITHKLINE-US2016GSK057011

PATIENT
  Age: 60 Year
  Sex: Female

DRUGS (2)
  1. TANZEUM [Suspect]
     Active Substance: ALBIGLUTIDE
     Indication: TYPE 2 DIABETES MELLITUS
     Dosage: 30 MG, WE
     Route: 042
     Dates: start: 201604
  2. PREDNISONE. [Suspect]
     Active Substance: PREDNISONE
     Indication: PRODUCT USED FOR UNKNOWN INDICATION
     Dosage: UNK, U

REACTIONS (5)
  - Accidental exposure to product [Unknown]
  - Product quality issue [Unknown]
  - Nervousness [Unknown]
  - Malaise [Unknown]
  - Device issue [Unknown]

NARRATIVE: CASE EVENT DATE: 20160421
